FAERS Safety Report 16426477 (Version 1)
Quarter: 2019Q2

REPORT INFORMATION
  Report Type: Spontaneous
  Country: US (occurrence: US)
  Receive Date: 20190613
  Receipt Date: 20190613
  Transmission Date: 20190711
  Serious: Yes (Hospitalization, Disabling)
  Sender: FDA-Public Use
  Company Number: US-JNJFOC-20190614802

PATIENT
  Age: 55 Year
  Sex: Male
  Weight: 97.98 kg

DRUGS (1)
  1. INVOKANA [Suspect]
     Active Substance: CANAGLIFLOZIN
     Indication: PRODUCT USED FOR UNKNOWN INDICATION
     Route: 048

REACTIONS (7)
  - Osteomyelitis [Recovering/Resolving]
  - Hypotension [Recovering/Resolving]
  - Gas gangrene [Recovering/Resolving]
  - Acute kidney injury [Recovered/Resolved]
  - Leg amputation [Unknown]
  - Septic shock [Recovered/Resolved]
  - Diabetic foot infection [Recovering/Resolving]

NARRATIVE: CASE EVENT DATE: 2018
